FAERS Safety Report 18975424 (Version 2)
Quarter: 2021Q2

REPORT INFORMATION
  Report Type: Spontaneous
  Country: JP (occurrence: JP)
  Receive Date: 20210305
  Receipt Date: 20210407
  Transmission Date: 20210717
  Serious: Yes (Hospitalization)
  Sender: FDA-Public Use
  Company Number: JP-DSJP-DSJ-2021-106293AA

PATIENT
  Age: 83 Year
  Sex: Male
  Weight: 62 kg

DRUGS (5)
  1. ATORVASTATIN CALCIUM. [Concomitant]
     Active Substance: ATORVASTATIN CALCIUM
     Dosage: 5 MG, QD, AFTER BREAKFAST
     Route: 048
  2. ARTIST TABLETS 2.5MG [Suspect]
     Active Substance: CARVEDILOL
     Indication: HYPERTENSION
     Dosage: 2.5 MG, QD, AFTER BREAKFAST
     Route: 048
  3. SODIUM RABEPRAZOLE [Concomitant]
     Active Substance: RABEPRAZOLE SODIUM
     Dosage: 10 MG, QD, AFTER BREAKFAST
     Route: 048
  4. ASPIRIN                            /00002701/ [Concomitant]
     Active Substance: ASPIRIN
     Dosage: 81 MG, QD, AFTER BREAKFAST
     Route: 048
  5. OLMETEC OD TABLETS 5MG [Suspect]
     Active Substance: OLMESARTAN MEDOXOMIL
     Indication: HYPERTENSION
     Dosage: 5 MG, QD, AFTER BREAKFAST
     Route: 048

REACTIONS (4)
  - Pyrexia [Unknown]
  - Cardiac failure [Unknown]
  - Hypertension [Unknown]
  - Dyspnoea [Unknown]
